FAERS Safety Report 14803157 (Version 1)
Quarter: 2018Q2

REPORT INFORMATION
  Report Type: Spontaneous
  Country: US (occurrence: US)
  Receive Date: 20180425
  Receipt Date: 20180425
  Transmission Date: 20180711
  Serious: No
  Sender: FDA-Public Use
  Company Number: US-GLENMARK PHARMACEUTICALS-2017GMK027845

PATIENT

DRUGS (3)
  1. IMIQUIMOD. [Suspect]
     Active Substance: IMIQUIMOD
     Dosage: UNK, ONCE A WEEK
     Route: 061
     Dates: end: 2016
  2. IMIQUIMOD. [Suspect]
     Active Substance: IMIQUIMOD
     Dosage: UNK, 7 DAYS IN A ROW EVERY DAY AND THEN OFF FOR 7 DAYS AND THEN REPEAT FOR ANOTHER 7 DAYS ON AND OFF
     Route: 061
  3. IMIQUIMOD. [Suspect]
     Active Substance: IMIQUIMOD
     Indication: SKIN DISORDER
     Dosage: UNK, ONCE A WEEK
     Route: 061
     Dates: start: 2016

REACTIONS (4)
  - Hypoaesthesia [Not Recovered/Not Resolved]
  - Drug effect incomplete [Unknown]
  - Product use in unapproved indication [Unknown]
  - Off label use [Unknown]
